FAERS Safety Report 10159728 (Version 1)
Quarter: 2014Q2

REPORT INFORMATION
  Report Type: Spontaneous
  Country: US (occurrence: US)
  Receive Date: 20140508
  Receipt Date: 20140508
  Transmission Date: 20141212
  Serious: No
  Sender: FDA-Public Use
  Company Number: US-GLAXOSMITHKLINE-A1023472A

PATIENT
  Age: 67 Year
  Sex: Female

DRUGS (8)
  1. TYKERB [Suspect]
     Indication: BREAST CANCER
     Dosage: 1000MG PER DAY
     Route: 048
     Dates: start: 20121018
  2. XELODA [Suspect]
     Indication: PRODUCT USED FOR UNKNOWN INDICATION
     Route: 065
  3. LYRICA [Concomitant]
  4. NABUMETONE [Concomitant]
  5. VITAMIN [Concomitant]
  6. LEXAPRO [Concomitant]
  7. TOPAMAX [Concomitant]
  8. NEXIUM [Concomitant]

REACTIONS (1)
  - Drug ineffective [Unknown]
